FAERS Safety Report 7822176-6 (Version None)
Quarter: 2011Q4

REPORT INFORMATION
  Report Type: 
  Country: None (occurrence: None)
  Receive Date: 20111018
  Receipt Date: 20100924
  Transmission Date: 20120403
  Serious: No
  Sender: FDA-Public Use
  Company Number: US-ASTRAZENECA-2009SE18314

PATIENT
  Age: 843 Month
  Sex: Female
  Weight: 52.2 kg

DRUGS (11)
  1. SYMBICORT [Suspect]
     Dosage: 620 MCG, TOTAL
     Route: 055
     Dates: start: 20090101
  2. ANXIETY MEDICATION [Concomitant]
  3. SYMBICORT [Suspect]
     Indication: ASTHMA
     Dosage: 360 MCG 4 PUFFS
     Route: 055
     Dates: start: 20090901
  4. ALPRAZOLAM [Concomitant]
     Indication: ANXIETY
  5. RHINOCORT [Suspect]
     Indication: SINUSITIS
     Route: 045
     Dates: start: 20100701
  6. THYROID MEDICATION [Concomitant]
  7. MULTI-VITAMIN [Concomitant]
  8. LYRICA [Concomitant]
  9. LEVOTHYROXINE SODIUM [Concomitant]
     Indication: THYROID DISORDER
  10. CALCIUM CARBONATE [Concomitant]
  11. HYDROXYCHLOROQUINE SULFATE [Concomitant]
     Indication: SYSTEMIC LUPUS ERYTHEMATOSUS

REACTIONS (12)
  - SINUSITIS [None]
  - BREAST CYST [None]
  - BACK PAIN [None]
  - DYSPHONIA [None]
  - BONE PAIN [None]
  - DIZZINESS [None]
  - MALAISE [None]
  - DYSGEUSIA [None]
  - WEIGHT DECREASED [None]
  - SWELLING FACE [None]
  - DRUG INEFFECTIVE [None]
  - AGEUSIA [None]
